FAERS Safety Report 6464198-6 (Version None)
Quarter: 2009Q4

REPORT INFORMATION
  Report Type: 
  Country: None (occurrence: None)
  Receive Date: 20091201
  Receipt Date: 20091119
  Transmission Date: 20100525
  Serious: Yes (Other)
  Sender: FDA-Public Use
  Company Number: PHEH2009US14728

PATIENT
  Sex: Female

DRUGS (17)
  1. RECLAST [Suspect]
     Indication: OSTEOPENIA
     Dosage: 5MG X1 ONLY
     Route: 042
     Dates: start: 20090916
  2. SPIRONOLACTONE [Suspect]
     Dosage: UNK
  3. GABAPENTIN [Suspect]
     Dosage: 200 MG
     Dates: start: 20090910
  4. SYNTHROID [Concomitant]
     Dosage: UNK
  5. PRILOSEC [Concomitant]
     Dosage: UNK
  6. AMLODIPINE [Concomitant]
     Dosage: UNK
  7. FLEXERIL [Concomitant]
     Dosage: UNK
  8. XALATAN [Concomitant]
     Dosage: UNK
  9. NITROGLYCERIN [Concomitant]
     Dosage: UNK
  10. MULTI-VITAMINS [Concomitant]
     Dosage: UNK
  11. CALCIUM [Concomitant]
     Dosage: UNK
  12. VITAMIN A [Concomitant]
     Dosage: UNK
  13. LUTEIN [Concomitant]
     Dosage: UNK
  14. LOVAZA [Concomitant]
     Dosage: UNK
  15. TYLENOL (CAPLET) [Concomitant]
     Dosage: UNK
  16. PAXIL [Concomitant]
  17. LEVOTHYROXINE SODIUM [Concomitant]

REACTIONS (8)
  - BONE DISORDER [None]
  - CELLULITIS [None]
  - DEEP VEIN THROMBOSIS [None]
  - ERYTHEMA [None]
  - LIMB DISCOMFORT [None]
  - OEDEMA PERIPHERAL [None]
  - PAIN [None]
  - PAIN IN EXTREMITY [None]
